FAERS Safety Report 12923099 (Version 1)
Quarter: 2016Q4

REPORT INFORMATION
  Report Type: Spontaneous
  Country: US (occurrence: US)
  Receive Date: 20161109
  Receipt Date: 20161109
  Transmission Date: 20170207
  Serious: No
  Sender: FDA-Public Use
  Company Number: None

PATIENT

DRUGS (2)
  1. AZO URINARY TRACT DEFENSE ANTIBACTERIAL PROTECTION [Suspect]
     Active Substance: METHENAMINE\SODIUM SALICYLATE
     Route: 048
  2. AZO CRANBERRY [Suspect]
     Active Substance: DIETARY SUPPLEMENT
     Route: 048

REACTIONS (2)
  - Product label confusion [None]
  - Product packaging confusion [None]
